FAERS Safety Report 9425317 (Version 1)
Quarter: 2013Q3

REPORT INFORMATION
  Report Type: Spontaneous
  Country: PL (occurrence: PL)
  Receive Date: 20130729
  Receipt Date: 20130729
  Transmission Date: 20140515
  Serious: Yes (Life-Threatening)
  Sender: FDA-Public Use
  Company Number: PHHY2013PL079702

PATIENT
  Age: 62 Year
  Sex: Male
  Weight: 84 kg

DRUGS (2)
  1. CARBOPLATIN [Suspect]
     Indication: BRONCHIAL NEOPLASM
     Dosage: 6.3 MG
     Route: 042
     Dates: start: 20121112, end: 20121112
  2. CARBOPLATIN [Suspect]
     Indication: LUNG NEOPLASM MALIGNANT

REACTIONS (5)
  - Pallor [Unknown]
  - Back pain [Unknown]
  - Blood pressure decreased [Unknown]
  - Nausea [Unknown]
  - Malaise [Unknown]
